FAERS Safety Report 24921489 (Version 1)
Quarter: 2025Q1

REPORT INFORMATION
  Report Type: Report from Study
  Country: US (occurrence: US)
  Receive Date: 20250204
  Receipt Date: 20250204
  Transmission Date: 20250408
  Serious: Yes (Other)
  Sender: TEVA
  Company Number: US-TEVA-VS-3290167

PATIENT
  Age: 77 Year
  Sex: Female

DRUGS (1)
  1. AUSTEDO XR [Suspect]
     Active Substance: DEUTETRABENAZINE
     Indication: Tardive dyskinesia
     Route: 048
     Dates: start: 2024, end: 202501

REACTIONS (6)
  - Suicidal ideation [Not Recovered/Not Resolved]
  - Diarrhoea [Unknown]
  - Gait disturbance [Unknown]
  - Anal incontinence [Unknown]
  - Urinary incontinence [Unknown]
  - Adverse drug reaction [Unknown]

NARRATIVE: CASE EVENT DATE: 20250101
